FAERS Safety Report 16880072 (Version 1)
Quarter: 2019Q4

REPORT INFORMATION
  Report Type: Spontaneous
  Country: US (occurrence: US)
  Receive Date: 20190807
  Receipt Date: 20190807
  Transmission Date: 20200122
  Serious: No
  Sender: FDA-Public Use
  Company Number: None

PATIENT
  Age: 71 Year
  Sex: Male

DRUGS (1)
  1. DALFAMPRIDINE 10MG ER TAB [Suspect]
     Active Substance: DALFAMPRIDINE
     Indication: MULTIPLE SCLEROSIS
     Dates: start: 20190501

REACTIONS (5)
  - Product substitution issue [None]
  - Urinary tract infection [None]
  - Drug ineffective [None]
  - Multiple sclerosis [None]
  - Fall [None]

NARRATIVE: CASE EVENT DATE: 20190807
